FAERS Safety Report 7258122-6 (Version None)
Quarter: 2011Q1

REPORT INFORMATION
  Report Type: 
  Country: None (occurrence: None)
  Receive Date: 20110129
  Receipt Date: 20100727
  Transmission Date: 20110831
  Serious: Yes (Hospitalization)
  Sender: FDA-Public Use
  Company Number: US-ABBOTT-10P-163-0659913-00

PATIENT
  Sex: Female
  Weight: 56.296 kg

DRUGS (3)
  1. HUMIRA [Suspect]
     Indication: PSORIATIC ARTHROPATHY
     Dates: start: 20090101, end: 20090301
  2. HUMIRA [Suspect]
     Route: 058
     Dates: start: 20100101, end: 20100701
  3. HUMIRA [Suspect]
     Dates: start: 20090901, end: 20100101

REACTIONS (2)
  - KIDNEY INFECTION [None]
  - NEPHROLITHIASIS [None]
